FAERS Safety Report 11493210 (Version 1)
Quarter: 2015Q3

REPORT INFORMATION
  Report Type: Spontaneous
  Country: US (occurrence: US)
  Receive Date: 20150911
  Receipt Date: 20150911
  Transmission Date: 20151125
  Serious: No
  Sender: FDA-Public Use
  Company Number: US-ROCHE-1048875

PATIENT
  Sex: Male

DRUGS (2)
  1. RIBASPHERE [Concomitant]
     Active Substance: RIBAVIRIN
     Route: 065
     Dates: start: 20111212
  2. PEGASYS [Suspect]
     Active Substance: PEGINTERFERON ALFA-2A
     Indication: HEPATITIS C
     Route: 058
     Dates: start: 20111212

REACTIONS (4)
  - Dysgraphia [Unknown]
  - Memory impairment [Unknown]
  - Reading disorder [Unknown]
  - Asthenia [Unknown]
